FAERS Safety Report 8451307-2 (Version None)
Quarter: 2012Q2

REPORT INFORMATION
  Report Type: 
  Country: None (occurrence: None)
  Receive Date: 20120620
  Receipt Date: 20120508
  Transmission Date: 20120825
  Serious: No
  Sender: FDA-Public Use
  Company Number: US-VERTEX PHARMACEUTICALS INC.-AE-2012-002524

PATIENT
  Sex: Female
  Weight: 113.5 kg

DRUGS (17)
  1. INCIVEK [Suspect]
     Indication: HEPATITIS C
     Route: 048
     Dates: start: 20120212
  2. LISINOPRIL [Concomitant]
     Indication: RENAL HYPERTENSION
     Route: 048
  3. SYNTHROID [Concomitant]
     Indication: HYPOTHYROIDISM
     Route: 048
  4. FLEXERIL [Concomitant]
     Indication: MYALGIA
     Route: 048
  5. ALPRAZOLAM [Concomitant]
     Indication: ANXIETY
     Route: 048
  6. RIBAVIRIN [Concomitant]
     Indication: HEPATITIS C
     Route: 048
     Dates: start: 20120212, end: 20120404
  7. LEXAPRO [Concomitant]
     Indication: DEPRESSION
     Route: 048
  8. LAMICTAL [Concomitant]
     Route: 048
  9. PRANDIN [Concomitant]
     Indication: DIABETES MELLITUS
     Route: 048
  10. AMBIEN [Concomitant]
     Route: 048
  11. RIBAVIRIN [Concomitant]
     Route: 048
     Dates: start: 20120416
  12. PEGASYS [Concomitant]
     Indication: HEPATITIS C
     Route: 058
     Dates: start: 20120212
  13. BYETTA [Concomitant]
     Indication: DIABETES MELLITUS
     Route: 058
  14. LISINOPRIL [Concomitant]
     Indication: DIABETES MELLITUS
  15. TRAMADOL HCL [Concomitant]
     Indication: PAIN
     Route: 048
  16. ACETAMINOPHEN [Concomitant]
     Indication: PAIN
     Route: 048
  17. MULTI-VITAMIN [Concomitant]
     Route: 048

REACTIONS (13)
  - WEIGHT DECREASED [None]
  - AMNESIA [None]
  - FEELING ABNORMAL [None]
  - PYREXIA [None]
  - IRRITABILITY [None]
  - PAIN [None]
  - DRUG INEFFECTIVE [None]
  - ANAEMIA [None]
  - RASH GENERALISED [None]
  - AGITATION [None]
  - DECREASED APPETITE [None]
  - PHOTOPHOBIA [None]
  - NIGHTMARE [None]
